FAERS Safety Report 11363339 (Version 1)
Quarter: 2015Q3

REPORT INFORMATION
  Report Type: Spontaneous
  Country: US (occurrence: US)
  Receive Date: 20150811
  Receipt Date: 20150811
  Transmission Date: 20151125
  Serious: No
  Sender: FDA-Public Use
  Company Number: US-TEVA-570528USA

PATIENT
  Age: 82 Year
  Sex: Female
  Weight: 79 kg

DRUGS (6)
  1. CITALOPRAM [Concomitant]
     Active Substance: CITALOPRAM HYDROBROMIDE
     Indication: DEPRESSION
     Dosage: 20 MILLIGRAM DAILY;
  2. CELECOXIB. [Suspect]
     Active Substance: CELECOXIB
     Indication: RHEUMATOID ARTHRITIS
     Dosage: 200 MILLIGRAM DAILY;
     Route: 048
     Dates: start: 2015, end: 201506
  3. CELECOXIB. [Suspect]
     Active Substance: CELECOXIB
     Indication: ARTHRITIS
  4. ASPIRIN. [Concomitant]
     Active Substance: ASPIRIN
     Dosage: 81 MILLIGRAM DAILY;
     Route: 048
  5. VALSARTAN. [Suspect]
     Active Substance: VALSARTAN
     Indication: HYPERTENSION
     Dosage: 160 MILLIGRAM DAILY;
     Route: 048
  6. CENTRUM SILVER [Concomitant]
     Active Substance: VITAMINS

REACTIONS (5)
  - Muscle disorder [Not Recovered/Not Resolved]
  - Breast pain [Recovering/Resolving]
  - Arthralgia [Not Recovered/Not Resolved]
  - Tendon disorder [Not Recovered/Not Resolved]
  - Myalgia [Not Recovered/Not Resolved]

NARRATIVE: CASE EVENT DATE: 201505
